FAERS Safety Report 6283215-X (Version None)
Quarter: 2009Q3

REPORT INFORMATION
  Report Type: 
  Country: None (occurrence: None)
  Receive Date: 20090722
  Receipt Date: 20090710
  Transmission Date: 20100115
  Serious: Yes (Other)
  Sender: FDA-Public Use
  Company Number: 440017M09USA

PATIENT
  Age: 56 Year
  Sex: Male

DRUGS (2)
  1. SEROSTIM [Suspect]
     Indication: CACHEXIA
     Dates: start: 20090101
  2. SEROSTIM [Suspect]
     Indication: HIV INFECTION
     Dates: start: 20090101

REACTIONS (1)
  - ANAL CANCER [None]
